FAERS Safety Report 10991457 (Version 1)
Quarter: 2015Q2

REPORT INFORMATION
  Report Type: Report from Study
  Country: CL (occurrence: CL)
  Receive Date: 20150406
  Receipt Date: 20150406
  Transmission Date: 20150821
  Serious: Yes (Other)
  Sender: FDA-Public Use
  Company Number: CL-BAYER-2015-038131

PATIENT
  Age: 38 Year
  Sex: Female

DRUGS (1)
  1. MIRENA [Suspect]
     Active Substance: LEVONORGESTREL
     Dosage: 20 MCG/24HR, CONT
     Route: 015

REACTIONS (6)
  - Genital haemorrhage [None]
  - Headache [None]
  - Device expulsion [Recovered/Resolved]
  - Oedema peripheral [None]
  - Eyelid oedema [None]
  - Pain [None]
